FAERS Safety Report 5847016-6 (Version None)
Quarter: 2008Q3

REPORT INFORMATION
  Report Type: 
  Country: None (occurrence: None)
  Receive Date: 20080815
  Receipt Date: 20080804
  Transmission Date: 20090109
  Serious: Yes (Other)
  Sender: FDA-Public Use
  Company Number: IE-PFIZER INC-2008062539

PATIENT
  Sex: Female

DRUGS (2)
  1. CHANTIX [Suspect]
     Indication: SMOKING CESSATION THERAPY
     Route: 048
     Dates: start: 20080525, end: 20080604
  2. NASAL PREPARATIONS [Concomitant]

REACTIONS (2)
  - HOMICIDAL IDEATION [None]
  - LOWER RESPIRATORY TRACT INFECTION [None]
